FAERS Safety Report 6154816-4 (Version None)
Quarter: 2009Q2

REPORT INFORMATION
  Report Type: 
  Country: None (occurrence: None)
  Receive Date: 20090414
  Receipt Date: 20090409
  Transmission Date: 20091009
  Serious: Yes (Life-Threatening, Hospitalization)
  Sender: FDA-Public Use
  Company Number: PHHY2009BR13487

PATIENT
  Age: 83 Year
  Sex: Male

DRUGS (2)
  1. DIOVAN HCT [Suspect]
     Indication: BLOOD PRESSURE
     Dosage: 160/12.5 MG, 1 TABLET PER DAY
     Route: 048
     Dates: start: 20070101
  2. TEGRETOL [Suspect]
     Dosage: 200 MG

REACTIONS (7)
  - AGITATION [None]
  - DEHYDRATION [None]
  - DEMENTIA ALZHEIMER'S TYPE [None]
  - DIARRHOEA [None]
  - GASTROENTERITIS BACTERIAL [None]
  - MALNUTRITION [None]
  - URINARY TRACT INFECTION [None]
